FAERS Safety Report 15246821 (Version 2)
Quarter: 2018Q4

REPORT INFORMATION
  Report Type: Spontaneous
  Country: AR (occurrence: AR)
  Receive Date: 20180806
  Receipt Date: 20180822
  Transmission Date: 20190204
  Serious: Yes (Other)
  Sender: FDA-Public Use
  Company Number: PHHY2018AR064952

PATIENT
  Sex: Female

DRUGS (5)
  1. CORTISONE [Suspect]
     Active Substance: CORTISONE\HYDROCORTISONE
     Indication: RESPIRATORY DISORDER
     Route: 065
  2. VENTOLIN [Concomitant]
     Active Substance: ALBUTEROL SULFATE
     Indication: PRODUCT USED FOR UNKNOWN INDICATION
     Route: 065
  3. ALCON LAGRIMA II (ALC) (DEXTRAN 70\HYPROMELLOSE) [Suspect]
     Active Substance: DEXTRAN 70\HYPROMELLOSES
     Indication: DRY EYE
     Dosage: UNK
     Route: 047
  4. ALLEGRA [Concomitant]
     Active Substance: FEXOFENADINE HYDROCHLORIDE
     Indication: PRODUCT USED FOR UNKNOWN INDICATION
     Route: 065
  5. LEVOTHYROXINE. [Concomitant]
     Active Substance: LEVOTHYROXINE
     Indication: PRODUCT USED FOR UNKNOWN INDICATION
     Route: 065

REACTIONS (17)
  - Hypersensitivity [Unknown]
  - Hypothyroidism [Unknown]
  - Foreign body sensation in eyes [Unknown]
  - Keratitis [Unknown]
  - Malaise [Unknown]
  - Gastritis [Unknown]
  - Allergic pharyngitis [Unknown]
  - Asthma [Unknown]
  - Rosacea [Unknown]
  - Spinal disorder [Unknown]
  - Cataract [Unknown]
  - Nasal congestion [Unknown]
  - Discomfort [Unknown]
  - Hypertension [Unknown]
  - Skin exfoliation [Unknown]
  - Osteoarthritis [Unknown]
  - Eye swelling [Unknown]
